FAERS Safety Report 9305478 (Version 1)
Quarter: 2013Q1

REPORT INFORMATION
  Report Type: Spontaneous
  Country: DE (occurrence: None)
  Receive Date: 20121227
  Receipt Date: 20121227
  Transmission Date: 20140127
  Serious: Yes (Other)
  Sender: FDA-Public Use
  Company Number: AUR-APL-2012-05466

PATIENT
  Age: 51 Year
  Sex: Female

DRUGS (1)
  1. CARVEDILOL (CARVEDILOL) [Suspect]
     Indication: HYPERTENSION
     Dosage: 1X1/2 TBL, DAILY (25 MG), ORAL
     Dates: start: 20120521

REACTIONS (1)
  - Diabetes mellitus [None]
